FAERS Safety Report 5582234-6 (Version None)
Quarter: 2007Q4

REPORT INFORMATION
  Report Type: 
  Country: None (occurrence: None)
  Receive Date: 20071130
  Receipt Date: 20070802
  Transmission Date: 20080405
  Serious: No
  Sender: FDA-Public Use
  Company Number: US200705007704

PATIENT
  Age: 46 Year
  Sex: Female

DRUGS (6)
  1. BYETTA [Suspect]
     Indication: TYPE 2 DIABETES MELLITUS
     Dosage: 5 UG, 2/D, SUBCUTANEOUS ; 10 UG, 2/D, SUBCUTANEOUS
     Route: 058
     Dates: start: 20070401, end: 20070515
  2. BYETTA [Suspect]
     Indication: TYPE 2 DIABETES MELLITUS
     Dosage: 5 UG, 2/D, SUBCUTANEOUS ; 10 UG, 2/D, SUBCUTANEOUS
     Route: 058
     Dates: start: 20070516
  3. FERROUS SULFATE TAB [Concomitant]
  4. DRUG USED IN DIABETES [Concomitant]
  5. GLUCOVANCE [Concomitant]
  6. DONG QUAI COMPLEX (ANGELICA ACUTILOBA, ANGELICA ARCHANGELICA ROOT, ANG [Concomitant]

REACTIONS (4)
  - DECREASED APPETITE [None]
  - HAEMOGLOBIN [None]
  - URTICARIA [None]
  - WEIGHT DECREASED [None]
